FAERS Safety Report 6423738-3 (Version None)
Quarter: 2009Q4

REPORT INFORMATION
  Report Type: 
  Country: None (occurrence: None)
  Receive Date: 20091102
  Receipt Date: 20091023
  Transmission Date: 20100525
  Serious: Yes (Other)
  Sender: FDA-Public Use
  Company Number: JP-ABBOTT-09P-087-0602931-00

PATIENT
  Age: 77 Year
  Sex: Male

DRUGS (3)
  1. SEVOFRANE [Suspect]
     Indication: GENERAL ANAESTHESIA
  2. FENTANYL-100 [Concomitant]
     Indication: GENERAL ANAESTHESIA
  3. NOREPINEPHRINE BITARTRATE [Concomitant]
     Indication: BLOOD PRESSURE
     Route: 040

REACTIONS (2)
  - BLOOD PRESSURE DECREASED [None]
  - PNEUMOTHORAX [None]
